FAERS Safety Report 11040094 (Version 1)
Quarter: 2015Q2

REPORT INFORMATION
  Report Type: Spontaneous
  Country: JP (occurrence: JP)
  Receive Date: 20150416
  Receipt Date: 20150416
  Transmission Date: 20150821
  Serious: Yes (Other)
  Sender: FDA-Public Use
  Company Number: JP-MYLANLABS-2015M1012635

PATIENT

DRUGS (14)
  1. NORTRIPTYLINE [Suspect]
     Active Substance: NORTRIPTYLINE
     Indication: DEPRESSION
     Dosage: 50MG/D; INCREASED TO 100MG/D
     Route: 065
  2. SULPIRIDE [Concomitant]
     Active Substance: SULPIRIDE
     Dosage: 150MG
     Route: 065
  3. MIRTAZAPINE. [Concomitant]
     Active Substance: MIRTAZAPINE
     Dosage: 45MG
     Route: 065
  4. RISPERIDONE. [Concomitant]
     Active Substance: RISPERIDONE
     Dosage: 1MG
     Route: 065
  5. CLONAZEPAM. [Concomitant]
     Active Substance: CLONAZEPAM
     Dosage: 0.5MG
     Route: 065
  6. FLUNITRAZEPAM [Concomitant]
     Active Substance: FLUNITRAZEPAM
     Dosage: 2MG
     Route: 065
  7. CLOMIPRAMINE [Suspect]
     Active Substance: CLOMIPRAMINE
     Indication: DEPRESSION
     Dosage: 75MG/D; INCREASED TO 150MG/D
     Route: 065
  8. CLOMIPRAMINE [Suspect]
     Active Substance: CLOMIPRAMINE
     Dosage: 50MG/D
     Route: 065
  9. RISPERIDONE. [Concomitant]
     Active Substance: RISPERIDONE
     Dosage: 0.5MG
     Route: 065
  10. CLOMIPRAMINE [Suspect]
     Active Substance: CLOMIPRAMINE
     Dosage: 150MG/D; DECREASED TO 50MG/D
     Route: 065
  11. NORTRIPTYLINE [Suspect]
     Active Substance: NORTRIPTYLINE
     Dosage: 100MG/D
     Route: 065
  12. LITHIUM. [Concomitant]
     Active Substance: LITHIUM
     Indication: DEPRESSION
     Dosage: 400MG/D
     Route: 065
  13. CLONAZEPAM. [Concomitant]
     Active Substance: CLONAZEPAM
     Dosage: 1MG
     Route: 065
  14. MIRTAZAPINE. [Concomitant]
     Active Substance: MIRTAZAPINE
     Dosage: 30MG
     Route: 065

REACTIONS (1)
  - Electrocardiogram abnormal [Recovered/Resolved]
